FAERS Safety Report 5880254-5 (Version None)
Quarter: 2008Q3

REPORT INFORMATION
  Report Type: 
  Country: None (occurrence: None)
  Receive Date: 20080912
  Receipt Date: 20080902
  Transmission Date: 20090109
  Serious: Yes (Hospitalization)
  Sender: FDA-Public Use
  Company Number: PHBS2008IT05626

PATIENT
  Age: 27 Year
  Sex: Female

DRUGS (5)
  1. CYCLOSPORINE [Suspect]
     Indication: PEMPHIGUS
     Dosage: 300 MG/DAY
     Route: 065
  2. PREDNISONE TAB [Suspect]
     Indication: PEMPHIGUS
     Dosage: 100 MG/DAY
  3. AZATHIOPRINE [Suspect]
     Indication: PEMPHIGUS
     Dosage: 80 MG/DAY
  4. CYCLOPHOSPHAMIDE [Suspect]
     Indication: PEMPHIGUS
     Dosage: 83 MG/DAY
  5. PLASMAPHERESIS [Concomitant]
     Indication: PEMPHIGUS
     Dosage: 2 CYCLES

REACTIONS (10)
  - ANAEMIA [None]
  - CATARACT [None]
  - CUSHING'S SYNDROME [None]
  - CYSTITIS HAEMORRHAGIC [None]
  - DEPRESSION [None]
  - DISEASE RECURRENCE [None]
  - LEUKOPENIA [None]
  - MENSTRUAL DISORDER [None]
  - OSTEOPOROSIS [None]
  - THROMBOCYTOPENIA [None]
